FAERS Safety Report 19104879 (Version 2)
Quarter: 2021Q2

REPORT INFORMATION
  Report Type: Spontaneous
  Country: ES (occurrence: ES)
  Receive Date: 20210408
  Receipt Date: 20210608
  Transmission Date: 20210717
  Serious: Yes (Death, Hospitalization, Other)
  Sender: FDA-Public Use
  Company Number: ES-AUROBINDO-AUR-APL-2021-014525

PATIENT
  Age: 82 Year
  Sex: Female
  Weight: 77 kg

DRUGS (21)
  1. IRINOTECAN [Suspect]
     Active Substance: IRINOTECAN
     Indication: COLON CANCER
     Dosage: 258 MILLIGRAM, 2 WEEK
     Route: 042
     Dates: start: 20200218, end: 20200218
  2. FLUOROURACIL. [Suspect]
     Active Substance: FLUOROURACIL
     Indication: COLON CANCER
     Dosage: 4128 MILLIGRAM, 2 WEEK
     Route: 042
     Dates: start: 20200218, end: 20200218
  3. FOLINIC ACID [Suspect]
     Active Substance: LEUCOVORIN
     Dosage: 680 MILLIGRAM, 2 WEEK
     Route: 042
     Dates: start: 20210315, end: 20210315
  4. DIAZEPAM. [Concomitant]
     Active Substance: DIAZEPAM
     Indication: PRODUCT USED FOR UNKNOWN INDICATION
     Dosage: 5 MILLIGRAM
     Route: 048
     Dates: start: 20210201
  5. METOCLOPRAMIDE. [Concomitant]
     Active Substance: METOCLOPRAMIDE
     Indication: PROPHYLAXIS
     Dosage: 3 MILLIGRAM
     Route: 048
     Dates: start: 20210118
  6. LEVOTHYROXINE SODIUM. [Concomitant]
     Active Substance: LEVOTHYROXINE SODIUM
     Indication: HYPOTHYROIDISM
     Dosage: 225 MILLIGRAM
     Route: 048
     Dates: start: 20180928
  7. AFLIBERCEPT [Suspect]
     Active Substance: AFLIBERCEPT
     Indication: COLON CANCER
     Dosage: 308 MILLIGRAM, 2 WEEK
     Route: 042
     Dates: start: 20200218, end: 20210218
  8. IRINOTECAN [Suspect]
     Active Substance: IRINOTECAN
     Dosage: 258 MILLIGRAM, 2 WEEK
     Route: 042
     Dates: start: 20200526, end: 20200526
  9. AFLIBERCEPT [Suspect]
     Active Substance: AFLIBERCEPT
     Dosage: 308 MILLIGRAM, 2 WEEK
     Route: 042
     Dates: start: 20210315, end: 20210315
  10. FOLINIC ACID [Suspect]
     Active Substance: LEUCOVORIN
     Indication: COLON CANCER
     Dosage: 680 MILLIGRAM, 2 WEEK
     Route: 042
     Dates: start: 20200218, end: 20200218
  11. AMITRIPTYLINE [Concomitant]
     Active Substance: AMITRIPTYLINE
     Indication: PRODUCT USED FOR UNKNOWN INDICATION
     Dosage: 35 MILLIGRAM
     Route: 048
     Dates: start: 20130311
  12. METAMIZOLE [Concomitant]
     Active Substance: METAMIZOLE
     Indication: PAIN
     Dosage: 1725 MILLIGRAM
     Route: 048
     Dates: start: 20201214
  13. TRAMADOL. [Concomitant]
     Active Substance: TRAMADOL
     Indication: PAIN
     Dosage: 112.5 MILLIGRAM
     Route: 048
     Dates: start: 20210201
  14. TORASEMIDE [Concomitant]
     Active Substance: TORSEMIDE
     Indication: HYPERTENSION
     Dosage: 10 MILLIGRAM
     Route: 048
     Dates: start: 20130515
  15. DEXAMETHASONE. [Concomitant]
     Active Substance: DEXAMETHASONE
     Indication: PROPHYLAXIS
     Dosage: 8 MILLIGRAM
     Route: 048
     Dates: start: 20210310
  16. FLUNARIZINE HYDROCHLORIDE [Concomitant]
     Active Substance: FLUNARIZINE HYDROCHLORIDE
     Indication: VERTIGO
     Dosage: 5 MILLIGRAM
     Route: 048
     Dates: start: 20151123
  17. PARACETAMOL [Concomitant]
     Active Substance: ACETAMINOPHEN
     Indication: PAIN
     Dosage: 975 MILLIGRAM
     Route: 048
     Dates: start: 20210201
  18. VALSARTAN. [Concomitant]
     Active Substance: VALSARTAN
     Indication: HYPERTENSION
     Dosage: 80 MILLIGRAM
     Route: 048
     Dates: start: 20210104
  19. FLUOROURACIL. [Suspect]
     Active Substance: FLUOROURACIL
     Dosage: 4128 MILLIGRAM, 2 WEEK
     Route: 042
     Dates: start: 20210315, end: 20210315
  20. DEXKETOPROFEN [Concomitant]
     Active Substance: DEXKETOPROFEN
     Indication: PAIN
     Dosage: 75 MILLIGRAM
     Route: 048
     Dates: start: 20201116
  21. FENTANYL. [Concomitant]
     Active Substance: FENTANYL
     Indication: PAIN
     Dosage: 288 MICROGRAM
     Route: 062
     Dates: start: 20210301

REACTIONS (1)
  - Intestinal ischaemia [Fatal]

NARRATIVE: CASE EVENT DATE: 20210317
